FAERS Safety Report 6385411-X (Version None)
Quarter: 2009Q4

REPORT INFORMATION
  Report Type: 
  Country: None (occurrence: None)
  Receive Date: 20091002
  Receipt Date: 20080826
  Transmission Date: 20100525
  Serious: No
  Sender: FDA-Public Use
  Company Number: US-ASTRAZENECA-2008UW17577

PATIENT
  Age: 73 Year
  Sex: Female
  Weight: 72.6 kg

DRUGS (6)
  1. ARIMIDEX [Suspect]
     Indication: BREAST CANCER
     Route: 048
     Dates: start: 20050101
  2. LEVOTHYROXINE SODIUM [Concomitant]
  3. ATENOLOL [Concomitant]
  4. ROSUVASTATIN CALCIUM [Concomitant]
     Route: 048
  5. PREVACID [Concomitant]
     Dosage: AS NEEDED
  6. PROTON PUMP [Concomitant]
     Dosage: AS NEEDED

REACTIONS (1)
  - FINGER DEFORMITY [None]
